FAERS Safety Report 4450396-X (Version None)
Quarter: 2004Q3

REPORT INFORMATION
  Report Type: 
  Country: None (occurrence: None)
  Receive Date: 20040915
  Receipt Date: 20040908
  Transmission Date: 20050211
  Serious: Yes (Hospitalization)
  Sender: FDA-Public Use
  Company Number: SE-MERCK-0409SWE00010

PATIENT
  Age: 74 Year
  Sex: Female

DRUGS (4)
  1. ATENOLOL [Concomitant]
     Route: 065
  2. DUROFERON [Concomitant]
     Route: 065
  3. HYZAAR [Suspect]
     Indication: HYPERTENSION
     Route: 048
     Dates: start: 20020220, end: 20040511
  4. ZOPICLONE [Concomitant]
     Route: 065

REACTIONS (6)
  - ANAEMIA [None]
  - HAEMATOCHEZIA [None]
  - HIATUS HERNIA [None]
  - MYALGIA [None]
  - RED BLOOD CELL SEDIMENTATION RATE INCREASED [None]
  - VOMITING [None]
